FAERS Safety Report 16144504 (Version 2)
Quarter: 2019Q2

REPORT INFORMATION
  Report Type: Spontaneous
  Country: ES (occurrence: ES)
  Receive Date: 20190402
  Receipt Date: 20190503
  Transmission Date: 20190711
  Serious: Yes (Hospitalization)
  Sender: FDA-Public Use
  Company Number: ES-B.I. PHARMACEUTICALS,INC./RIDGEFIELD-2019-BI-013973

PATIENT
  Age: 54 Year
  Sex: Female

DRUGS (3)
  1. DOCETAXEL. [Concomitant]
     Active Substance: DOCETAXEL
     Indication: PRODUCT USED FOR UNKNOWN INDICATION
     Dosage: DOSAGE: 60 MG/M2
     Route: 065
  2. DOCETAXEL. [Concomitant]
     Active Substance: DOCETAXEL
     Dosage: DOSAGE: 50 MG/M2
     Route: 065
  3. VARGATEF [Suspect]
     Active Substance: NINTEDANIB
     Indication: PRODUCT USED FOR UNKNOWN INDICATION
     Route: 065
     Dates: end: 201904

REACTIONS (3)
  - Diarrhoea [Unknown]
  - Embolism venous [Not Recovered/Not Resolved]
  - Febrile neutropenia [Unknown]

NARRATIVE: CASE EVENT DATE: 20190412
